FAERS Safety Report 10674804 (Version 1)
Quarter: 2014Q4

REPORT INFORMATION
  Report Type: Spontaneous
  Country: US (occurrence: US)
  Receive Date: 20141224
  Receipt Date: 20141224
  Transmission Date: 20150529
  Serious: Yes (Death, Other)
  Sender: FDA-Public Use
  Company Number: US-PURDUE PHARMA-USA-2014-0119933

PATIENT
  Age: 22 Month
  Sex: Male

DRUGS (1)
  1. MORPHINE SULFATE (SIMILAR TO NDA 19-516) [Suspect]
     Active Substance: MORPHINE SULFATE
     Indication: SOMNOLENCE
     Dosage: UNKNOWN
     Route: 048

REACTIONS (2)
  - Intentional overdose [Fatal]
  - Victim of child abuse [Unknown]

NARRATIVE: CASE EVENT DATE: 2013
